FAERS Safety Report 20151569 (Version 1)
Quarter: 2021Q4

REPORT INFORMATION
  Report Type: Spontaneous
  Country: US (occurrence: US)
  Receive Date: 20211206
  Receipt Date: 20211206
  Transmission Date: 20220303
  Serious: No
  Sender: FDA-Public Use
  Company Number: US-BRISTOL-MYERS SQUIBB COMPANY-BMS-2021-128413

PATIENT
  Sex: Female

DRUGS (2)
  1. ELIQUIS [Suspect]
     Active Substance: APIXABAN
     Indication: Cerebrovascular accident prophylaxis
     Dosage: UNK
     Route: 065
  2. PAPAYA [Concomitant]
     Active Substance: PAPAYA
     Indication: Product used for unknown indication
     Dosage: 4 MILLIGRAM
     Route: 065

REACTIONS (5)
  - Contusion [Unknown]
  - Fall [Unknown]
  - Limb injury [Unknown]
  - Dyspepsia [Unknown]
  - Chest discomfort [Unknown]
